FAERS Safety Report 8354805 (Version 3)
Quarter: 2013Q4

REPORT INFORMATION
  Report Type: Report from Study
  Country: DE (occurrence: DE)
  Receive Date: 20120125
  Receipt Date: 20131119
  Transmission Date: 20140711
  Serious: Yes (Death, Life-Threatening, Hospitalization, Other)
  Sender: FDA-Public Use
  Company Number: DE-CELGENEUS-062-C5013-12011977

PATIENT
  Age: 62 Year
  Sex: Male
  Weight: 87.5 kg

DRUGS (21)
  1. CC-5013 [Suspect]
     Indication: MYELODYSPLASTIC SYNDROME
     Route: 048
     Dates: start: 20110131
  2. ALLOPURINOL [Concomitant]
     Indication: HYPERURICAEMIA
     Dosage: 100 MILLIGRAM
     Route: 048
     Dates: start: 20111009, end: 20111012
  3. ALLOPURINOL [Concomitant]
     Dosage: 150 MILLIGRAM
     Route: 048
     Dates: start: 201002
  4. URSODEOXYCHOL ACID [Concomitant]
     Indication: HYPERCHOLESTEROLAEMIA
     Dosage: 100 MILLIGRAM
     Route: 048
     Dates: start: 2011, end: 20111012
  5. POSACONAZOLE [Concomitant]
     Indication: PROPHYLAXIS
     Dosage: 100 MILLIGRAM
     Route: 048
     Dates: start: 20111009, end: 20111011
  6. AMPHOTERICIN B [Concomitant]
     Indication: PROPHYLAXIS
     Dosage: 100 MILLIGRAM
     Route: 048
     Dates: start: 20111011, end: 20111014
  7. ACICLOVIR [Concomitant]
     Indication: PROPHYLAXIS
     Route: 048
     Dates: start: 20111009, end: 20111014
  8. CIPROFLOXACIN [Concomitant]
     Indication: INFECTION PROPHYLAXIS
     Route: 048
     Dates: start: 20111009, end: 20111013
  9. METOPROLOL [Concomitant]
     Indication: HYPERTENSION
     Route: 041
     Dates: start: 20111009, end: 20111013
  10. METOPROLOL [Concomitant]
     Dosage: 200 MILLIGRAM
     Route: 048
     Dates: start: 2004, end: 201110
  11. AMLODIPINE [Concomitant]
     Indication: HYPERTENSION
     Dosage: 10 IU (INTERNATIONAL UNIT)
     Route: 048
     Dates: start: 2011, end: 20111010
  12. SITAGLIPTIN [Concomitant]
     Indication: DIABETES MELLITUS
     Dosage: 20 DROPS
     Route: 048
     Dates: start: 20110214
  13. METFORMINHYDROCHLORID [Concomitant]
     Indication: DIABETES MELLITUS
     Dosage: 20 DROPS
     Route: 048
     Dates: start: 20110214
  14. MUCOFALK [Concomitant]
     Indication: CONSTIPATION PROPHYLAXIS
     Route: 048
     Dates: start: 20110314
  15. PARACETAMOL [Concomitant]
     Indication: BURSITIS
     Route: 048
     Dates: start: 20110314
  16. HYDROCHLOROTHIAZID [Concomitant]
     Indication: HYPERTENSION
     Dosage: 25 MILLIGRAM
     Route: 048
     Dates: start: 2004
  17. IDEOS [Concomitant]
     Indication: PROPHYLAXIS
     Route: 048
     Dates: start: 20110328
  18. DEFERASIROX [Concomitant]
     Indication: HAEMOSIDEROSIS
     Dosage: 3 GRAM
     Route: 048
     Dates: start: 200811
  19. RAMIPRIL [Concomitant]
     Indication: HYPERTENSION
     Dosage: 5 MILLIGRAM
     Route: 048
     Dates: start: 2004, end: 20111012
  20. SIMVASTATIN [Concomitant]
     Indication: HYPERCHOLESTEROLAEMIA
     Dosage: 20 MILLIGRAM
     Route: 048
     Dates: start: 2004
  21. LOPERAMID [Concomitant]
     Indication: DIARRHOEA
     Route: 048
     Dates: start: 201002

REACTIONS (1)
  - Graft versus host disease in intestine [Fatal]
